FAERS Safety Report 4544303-9 (Version None)
Quarter: 2004Q4

REPORT INFORMATION
  Report Type: 
  Country: None (occurrence: None)
  Receive Date: 20041230
  Receipt Date: 20041220
  Transmission Date: 20050328
  Serious: Yes (Congenital Anomaly)
  Sender: FDA-Public Use
  Company Number: CIP04002730

PATIENT
  Sex: 0

DRUGS (2)
  1. FURADANTIN [Suspect]
     Indication: URINARY TRACT INFECTION
     Dosage: 200 MG DAILY, TRANSPLACENTAL
     Route: 064
  2. CIPROFLOXACIN [Suspect]
     Indication: URINARY TRACT INFECTION
     Dosage: 500 MG DAILY, TRANSPLACENTAL
     Route: 064

REACTIONS (2)
  - CONGENITAL HYPOTHYROIDISM [None]
  - MATERNAL DRUGS AFFECTING FOETUS [None]
